FAERS Safety Report 8843825 (Version 2)
Quarter: 2012Q4

REPORT INFORMATION
  Report Type: 
  Country: US (occurrence: US)
  Receive Date: 20121016
  Receipt Date: 20121129
  Transmission Date: 20130627
  Serious: Yes (Other)
  Sender: FDA-Public Use
  Company Number: US-PFIZER INC-2012254233

PATIENT
  Age: 64 Year
  Sex: Female
  Weight: 57.6 kg

DRUGS (8)
  1. LYRICA [Suspect]
     Indication: FIBROMYALGIA
     Dosage: 75 mg, 1x/day
     Route: 048
  2. LYRICA [Suspect]
     Indication: ARTHRITIS
  3. CELEBREX [Suspect]
     Indication: ARTHRITIS
     Dosage: 200 mg, 1x/day
  4. BENZONATATE [Concomitant]
     Indication: COUGH
     Dosage: 100 mg, 1x/day
  5. SODIUM CHLORIDE [Concomitant]
     Indication: CYSTIC FIBROSIS LUNG
     Dosage: UNK
  6. LEVOTHYROXINE [Concomitant]
     Indication: POSTOPERATIVE CARE
     Dosage: 50mg three times in a week and 75mg four times a week
  7. LOSARTAN [Concomitant]
     Indication: BLOOD PRESSURE HIGH
     Dosage: 25 mg, 1x/day
  8. XOPENEX [Concomitant]
     Dosage: UNK

REACTIONS (11)
  - Scleroderma [Unknown]
  - Pneumonia [Recovered/Resolved]
  - Bronchiolitis [Unknown]
  - Chronic obstructive pulmonary disease [Unknown]
  - Sinusitis [Unknown]
  - Asthma [Unknown]
  - Pain [Unknown]
  - Dyspnoea [Unknown]
  - Post thrombotic syndrome [Unknown]
  - Erythema [Unknown]
  - White blood cell count abnormal [Unknown]
